FAERS Safety Report 5158210-4 (Version None)
Quarter: 2006Q4

REPORT INFORMATION
  Report Type: 
  Country: None (occurrence: None)
  Receive Date: 20061128
  Receipt Date: 20061116
  Transmission Date: 20070319
  Serious: Yes (Hospitalization)
  Sender: FDA-Public Use
  Company Number: PHBS2006NZ17878

PATIENT
  Age: 69 Year
  Sex: Male

DRUGS (5)
  1. TERBINAFINE HCL [Suspect]
  2. PAROXETINE HCL [Concomitant]
     Indication: DEPRESSION
     Dosage: 20 MG/DAY
     Route: 048
  3. CIPROFLOXACIN [Concomitant]
     Indication: ARTHRITIS BACTERIAL
     Dosage: 1 G/D
     Route: 048
     Dates: start: 20051016
  4. FLUCLOXACILLIN [Concomitant]
     Dates: end: 20051001
  5. ENOXAPARIN SODIUM [Concomitant]
     Indication: DEEP VEIN THROMBOSIS
     Dosage: 20 MG/D
     Route: 058
     Dates: start: 20051010, end: 20051208

REACTIONS (4)
  - ANAEMIA [None]
  - MONOCYTOSIS [None]
  - NEUTROPENIA [None]
  - THROMBOCYTOPENIA [None]
